FAERS Safety Report 11350471 (Version 1)
Quarter: 2015Q3

REPORT INFORMATION
  Report Type: Spontaneous
  Country: US (occurrence: US)
  Receive Date: 20150807
  Receipt Date: 20150807
  Transmission Date: 20151125
  Serious: Yes (Other)
  Sender: FDA-Public Use
  Company Number: US-PFIZER INC-2015258761

PATIENT
  Age: 52 Year
  Sex: Female
  Weight: 54.42 kg

DRUGS (26)
  1. CALCIUM/MAGNESIUM/ZINC [Concomitant]
     Dosage: 1 DF, DAILY (CALCIUM-1000 MG, MAGNESIUM-400MG, ZINC-15MG)
     Route: 048
  2. COENZYME Q10 [Concomitant]
     Active Substance: UBIDECARENONE
     Dosage: 400 MG, 1X/DAY
     Route: 048
  3. BACTROBAN [Concomitant]
     Active Substance: MUPIROCIN\MUPIROCIN CALCIUM
     Dosage: UNK, 2X/DAY (INSTILL 2 TIMES DAILY)
     Route: 045
  4. B COMPLETE [Concomitant]
     Dosage: UNK
     Route: 048
  5. MACRODANTIN [Concomitant]
     Active Substance: NITROFURANTOIN
     Dosage: 50 MG, AS NEEDED (AFTER INTERCOURSE)
     Route: 048
  6. FLORASTOR [Concomitant]
     Active Substance: SACCHAROMYCES CEREVISIAE
     Dosage: 250 MG, 2X/DAY
     Route: 048
  7. LACTAID [Concomitant]
     Active Substance: LACTASE
     Dosage: UNK, AS NEEDED (3000 UNIT)
     Route: 048
  8. COMBIVENT [Concomitant]
     Active Substance: ALBUTEROL SULFATE\IPRATROPIUM BROMIDE
     Dosage: UNK (DOSAGE: INHALE)
  9. LEXAPRO [Concomitant]
     Active Substance: ESCITALOPRAM OXALATE
     Dosage: 20 MG, 1X/DAY
     Route: 048
  10. THERATRUM COMPLETE WITH LYCOPENE AND LUTEIN [Concomitant]
     Dosage: 1 DF, DAILY (TAKE 1 TABLET BY MOUTH AS NEEDED)
     Route: 048
  11. ACIDOPHILUS [Concomitant]
     Active Substance: LACTOBACILLUS ACIDOPHILUS
     Dosage: 1 DF, DAILY
     Route: 048
  12. MOTRIN [Concomitant]
     Active Substance: IBUPROFEN
     Dosage: 800 MG, AS NEEDED
     Route: 048
  13. BIOTIN [Concomitant]
     Active Substance: BIOTIN
     Dosage: 10000 ?G, DAILY
     Route: 048
  14. PREMARIN [Suspect]
     Active Substance: ESTROGENS, CONJUGATED
     Dosage: 0.3 MG, DAILY
     Route: 048
     Dates: start: 20150724
  15. LINACLOTIDE [Concomitant]
     Active Substance: LINACLOTIDE
     Dosage: 145 ?G, 1X/DAY
     Route: 048
  16. NORCO [Concomitant]
     Active Substance: ACETAMINOPHEN\HYDROCODONE BITARTRATE
     Dosage: 1 DF, AS NEEDED (HYDROCODONE: 7.5 MG; ACETAMINOPHEN: 325 MG)
     Route: 048
  17. PRENATAL VITAMINS [Concomitant]
     Active Substance: VITAMINS
     Dosage: 1 DF, DAILY
     Route: 048
  18. ZANTAC [Concomitant]
     Active Substance: RANITIDINE HYDROCHLORIDE
     Dosage: 300 MG, DAILY (TAKE 0.5 TABLETS BY MOUTH 2 TIMES DAILY)
     Route: 048
  19. IMITREX [Concomitant]
     Active Substance: SUMATRIPTAN\SUMATRIPTAN SUCCINATE
     Dosage: 100 MG, 2X/DAY (TAKE 1 TABLET BY MOUTH ONCE. MAY REPEAT ONE TIME AFTER 2 HOURS AS NEEDED)
     Route: 048
  20. RELPAX [Concomitant]
     Active Substance: ELETRIPTAN HYDROBROMIDE
     Dosage: 40 MG, AS NEEDED
  21. VAGIFEM [Concomitant]
     Active Substance: ESTRADIOL
     Dosage: 10 ?G, 2X/WEEK  (INSERT 1 APPLICATORFUL VAGINALLY)
     Route: 067
  22. NEURONTIN [Concomitant]
     Active Substance: GABAPENTIN
     Dosage: 300 MG, (TAKE BY MOUTH 1 TAB IN AM, 3 TABS IN NIGHTLY)
     Route: 048
  23. ATIVAN [Concomitant]
     Active Substance: LORAZEPAM
     Dosage: 1 MG, AS NEEDED (TAKE 1 TABLET BY MOUTH AS NEEDED)
     Route: 048
  24. NAPROSYN [Concomitant]
     Active Substance: NAPROXEN
     Dosage: 500 MG, 2X/DAY (TAKE 1 TABLET BY MOUTH TWICE DAILY AS NEEDED)
     Route: 048
  25. TOPAMAX [Concomitant]
     Active Substance: TOPIRAMATE
     Dosage: 50 MG, 1X/DAY ((TAKE 2 TABLETS BY MOUTH NIGHTLY)
     Route: 048
  26. DIFLUCAN [Concomitant]
     Active Substance: FLUCONAZOLE
     Dosage: 150 MG, ALTERNATE DAY

REACTIONS (12)
  - Systemic lupus erythematosus [Unknown]
  - Eructation [Unknown]
  - Mitochondrial myopathy [Unknown]
  - Change of bowel habit [Unknown]
  - Dizziness [Unknown]
  - Migraine [Unknown]
  - Abdominal pain [Unknown]
  - Constipation [Unknown]
  - Flatulence [Unknown]
  - Clostridium difficile colitis [Unknown]
  - Micturition urgency [Unknown]
  - Anal haemorrhage [Unknown]
